FAERS Safety Report 9951034 (Version 1)
Quarter: 2014Q1

REPORT INFORMATION
  Report Type: Report from Study
  Country: US (occurrence: US)
  Receive Date: 20140304
  Receipt Date: 20140304
  Transmission Date: 20141002
  Serious: No
  Sender: FDA-Public Use
  Company Number: US-ABBVIE-13P-163-1065821-00

PATIENT
  Age: 51 Year
  Sex: Female
  Weight: 90.8 kg

DRUGS (11)
  1. HUMIRA [Suspect]
     Indication: HIDRADENITIS
     Route: 058
     Dates: start: 20120814, end: 20120814
  2. HUMIRA [Suspect]
     Route: 058
     Dates: start: 20120821, end: 20130219
  3. ZYRTEC [Concomitant]
     Indication: SEASONAL ALLERGY
  4. VITAMIN D [Concomitant]
     Indication: ROUTINE HEALTH MAINTENANCE
  5. MULTIVITAMIN [Concomitant]
     Indication: ROUTINE HEALTH MAINTENANCE
  6. FISH OIL [Concomitant]
     Indication: ROUTINE HEALTH MAINTENANCE
  7. ZINC [Concomitant]
     Indication: ROUTINE HEALTH MAINTENANCE
  8. MAGNESIUM [Concomitant]
     Indication: ROUTINE HEALTH MAINTENANCE
  9. CALCIUM [Concomitant]
     Indication: ROUTINE HEALTH MAINTENANCE
  10. VITAMIN B COMPLEX [Concomitant]
     Indication: ROUTINE HEALTH MAINTENANCE
  11. ASPIRIN [Concomitant]
     Indication: CARDIAC DISORDER

REACTIONS (1)
  - Resting tremor [Not Recovered/Not Resolved]
